FAERS Safety Report 21532471 (Version 1)
Quarter: 2022Q4

REPORT INFORMATION
  Report Type: Report from Study
  Country: FR (occurrence: None)
  Receive Date: 20221101
  Receipt Date: 20221101
  Transmission Date: 20230112
  Serious: Yes (Death)
  Sender: FDA-Public Use
  Company Number: 2022A358601

PATIENT
  Age: 914 Month
  Sex: Male
  Weight: 64.3 kg

DRUGS (1)
  1. EVUSHELD [Suspect]
     Active Substance: CILGAVIMAB\TIXAGEVIMAB
     Indication: COVID-19 prophylaxis
     Dosage: ONCE/SINGLE ADMINISTRATION
     Route: 030
     Dates: start: 20220610, end: 20220610

REACTIONS (2)
  - Gastrointestinal haemorrhage [Fatal]
  - Coronavirus test negative [Unknown]

NARRATIVE: CASE EVENT DATE: 20220609
